FAERS Safety Report 4449664-7 (Version None)
Quarter: 2004Q3

REPORT INFORMATION
  Report Type: 
  Country: None (occurrence: None)
  Receive Date: 20040913
  Receipt Date: 20040902
  Transmission Date: 20050211
  Serious: Yes (Other)
  Sender: FDA-Public Use
  Company Number: 2004230578DE

PATIENT
  Age: 69 Year
  Sex: Female

DRUGS (1)
  1. MYCOBUTIN [Suspect]
     Dosage: ORAL
     Route: 048

REACTIONS (4)
  - GENERAL PHYSICAL HEALTH DETERIORATION [None]
  - NAUSEA [None]
  - PANCYTOPENIA [None]
  - RETCHING [None]
